FAERS Safety Report 26035738 (Version 1)
Quarter: 2025Q4

REPORT INFORMATION
  Report Type: Spontaneous
  Country: US (occurrence: None)
  Receive Date: 20251112
  Receipt Date: 20251112
  Transmission Date: 20260118
  Serious: Yes (Hospitalization)
  Sender: FDA-CTU
  Company Number: None

PATIENT
  Sex: Male

DRUGS (1)
  1. VYALEV [Suspect]
     Active Substance: FOSCARBIDOPA\FOSLEVODOPA
     Indication: Parkinson^s disease
     Dosage: 1 ML SUBCUTANEOUS??OTHER FREQUENCY : SEE EVENT;?
     Route: 058

REACTIONS (5)
  - Delusion [None]
  - Psychotic disorder [None]
  - Somnolence [None]
  - Urinary tract infection [None]
  - Dysphagia [None]
